FAERS Safety Report 26207499 (Version 1)
Quarter: 2025Q4

REPORT INFORMATION
  Report Type: Spontaneous
  Country: GB (occurrence: GB)
  Receive Date: 20251229
  Receipt Date: 20251229
  Transmission Date: 20260118
  Serious: Yes (Hospitalization)
  Sender: ROCHE
  Company Number: None

PATIENT
  Age: 72 Year
  Sex: Female

DRUGS (13)
  1. BEVACIZUMAB [Suspect]
     Active Substance: BEVACIZUMAB
     Indication: Product used for unknown indication
  2. CARBOPLATIN [Suspect]
     Active Substance: CARBOPLATIN
     Indication: Product used for unknown indication
  3. PACLITAXEL [Suspect]
     Active Substance: PACLITAXEL
     Indication: Product used for unknown indication
  4. SERTRALINE HYDROCHLORIDE [Concomitant]
     Active Substance: SERTRALINE HYDROCHLORIDE
  5. Hyoscine butylbromide 10mg tablets [Concomitant]
  6. Co-codamol 30mg/500mg tablets [Concomitant]
  7. Trelegy Ellipta 92 / 55 / 22 micrograms / dose dry powder inhaler [Concomitant]
  8. ChloraPrep solution 1.5ml applicators (CareFusion U.K. Ltd) [Concomitant]
  9. Easyhaler Salbutamol sulfate 100 micrograms / dose dry powder inhaler [Concomitant]
  10. Tegaderm Film dressing 12cm x 12cm (3M Health Care Ltd) [Concomitant]
  11. AMITRIPTYLINE [Concomitant]
     Active Substance: AMITRIPTYLINE
  12. Carbocisteine 375mg capsules [Concomitant]
  13. OMEPRAZOLE [Concomitant]
     Active Substance: OMEPRAZOLE

REACTIONS (1)
  - Colitis [Recovered/Resolved with Sequelae]
